FAERS Safety Report 4392654-3 (Version None)
Quarter: 2004Q3

REPORT INFORMATION
  Report Type: 
  Country: None (occurrence: None)
  Receive Date: 20040701
  Receipt Date: 20040621
  Transmission Date: 20050211
  Serious: Yes (Hospitalization)
  Sender: FDA-Public Use
  Company Number: 2004EU001260

PATIENT
  Age: 49 Year
  Sex: Male

DRUGS (6)
  1. FK506 (TACROLIMUS) [Suspect]
     Indication: LIVER TRANSPLANT
     Dosage: SEE IMAGE
  2. ZIDOVUDINE [Suspect]
  3. LAMIVUDINE (LAMIVUDINE) [Suspect]
  4. EFAVIRENZ (EFAVIRENZ) [Suspect]
  5. AZATHIOPRINE [Concomitant]
  6. CORTICOSTEROIDS [Concomitant]

REACTIONS (7)
  - ASCITES [None]
  - DRUG INTERACTION [None]
  - GRAFT DYSFUNCTION [None]
  - HEPATIC FUNCTION ABNORMAL [None]
  - JAUNDICE [None]
  - RHABDOMYOLYSIS [None]
  - STAPHYLOCOCCAL INFECTION [None]
